FAERS Safety Report 8114092-X (Version None)
Quarter: 2012Q1

REPORT INFORMATION
  Report Type: 
  Country: None (occurrence: None)
  Receive Date: 20120203
  Receipt Date: 20120125
  Transmission Date: 20120608
  Serious: Yes (Other)
  Sender: FDA-Public Use
  Company Number: NP-ASTRAZENECA-2012SE05283

PATIENT
  Sex: Female

DRUGS (6)
  1. OXYGEN [Concomitant]
  2. BUPIVACAINE HCL [Suspect]
     Indication: ANAESTHESIA
     Route: 037
  3. METOCLOPRAMIDE [Concomitant]
     Indication: PREMEDICATION
     Route: 042
  4. LIDOCAINE [Concomitant]
  5. RANITIDINE [Concomitant]
     Indication: PREMEDICATION
     Route: 042
  6. LACTATED RINGER'S [Concomitant]
     Dosage: 10 ML/KG

REACTIONS (2)
  - ANAESTHETIC COMPLICATION [None]
  - DYSPNOEA [None]
